FAERS Safety Report 4939566-1 (Version None)
Quarter: 2006Q1

REPORT INFORMATION
  Report Type: 
  Country: None (occurrence: None)
  Receive Date: 20060310
  Receipt Date: 20060227
  Transmission Date: 20060701
  Serious: Yes (Hospitalization, Other)
  Sender: FDA-Public Use
  Company Number: 2006AC00392

PATIENT
  Age: 47 Year
  Sex: Female

DRUGS (1)
  1. TAMOXIFEN CITRATE [Suspect]
     Indication: BREAST CANCER STAGE I

REACTIONS (5)
  - ADENOMYOSIS [None]
  - CERVICAL POLYP [None]
  - ENDOMETRIAL HYPERPLASIA [None]
  - ENDOMETRIOSIS [None]
  - UTERINE LEIOMYOMA [None]
